FAERS Safety Report 4848316-9 (Version None)
Quarter: 2005Q4

REPORT INFORMATION
  Report Type: 
  Country: None (occurrence: None)
  Receive Date: 20051208
  Receipt Date: 20051102
  Transmission Date: 20060501
  Serious: Yes (Other)
  Sender: FDA-Public Use
  Company Number: 2005SE06938

PATIENT
  Age: 71 Year
  Sex: Female
  Weight: 78 kg

DRUGS (4)
  1. SEROQUEL [Suspect]
     Indication: SCHIZOPHRENIA
     Route: 048
     Dates: start: 20051011, end: 20051013
  2. CIPRAMIL [Concomitant]
     Indication: DEPRESSION
     Route: 048
     Dates: start: 19970101
  3. RIVOTRIL [Concomitant]
     Indication: ANXIETY
     Route: 048
     Dates: start: 19970101
  4. NORITREN [Concomitant]
     Indication: DEPRESSION
     Route: 048
     Dates: start: 19970101

REACTIONS (3)
  - ERYTHEMA [None]
  - OCULAR HYPERAEMIA [None]
  - PERIORBITAL OEDEMA [None]
